FAERS Safety Report 7179652-1 (Version None)
Quarter: 2010Q4

REPORT INFORMATION
  Report Type: 
  Country: None (occurrence: None)
  Receive Date: 20101221
  Receipt Date: 20101213
  Transmission Date: 20110411
  Serious: Yes (Death, Hospitalization)
  Sender: FDA-Public Use
  Company Number: FR-ROCHE-719511

PATIENT
  Sex: Male

DRUGS (3)
  1. MYCOPHENOLATE MOFETIL [Suspect]
     Dosage: THERAPY WITHDRAWN
     Route: 048
     Dates: start: 20091124, end: 20100829
  2. BELATACEPT [Suspect]
     Dosage: THERAPY WITHDRAWN
     Route: 042
     Dates: start: 20090628, end: 20100826
  3. BLINDED BASILIXIMAB [Suspect]
     Route: 042

REACTIONS (8)
  - ANAEMIA [None]
  - CHOLANGITIS [None]
  - DEVICE RELATED INFECTION [None]
  - EPSTEIN-BARR VIRUS INFECTION [None]
  - HEPATIC FAILURE [None]
  - LIVER ABSCESS [None]
  - PANCYTOPENIA [None]
  - SEPSIS [None]
